FAERS Safety Report 18166469 (Version 2)
Quarter: 2021Q1

REPORT INFORMATION
  Report Type: Spontaneous
  Country: US (occurrence: US)
  Receive Date: 20200818
  Receipt Date: 20210310
  Transmission Date: 20210419
  Serious: Yes (Death, Other)
  Sender: FDA-Public Use
  Company Number: US-GILEAD-2020-0490474

PATIENT
  Sex: Female

DRUGS (46)
  1. VIREAD [Suspect]
     Active Substance: TENOFOVIR DISOPROXIL FUMARATE
     Indication: HIV INFECTION
     Dosage: UNK
     Route: 048
     Dates: start: 2001
  2. PREZISTA [Concomitant]
     Active Substance: DARUNAVIR ETHANOLATE
     Indication: HIV INFECTION
  3. LANTUS [Concomitant]
     Active Substance: INSULIN GLARGINE
  4. FLONASE [Concomitant]
     Active Substance: FLUTICASONE PROPIONATE
  5. EDURANT [Concomitant]
     Active Substance: RILPIVIRINE HYDROCHLORIDE
     Indication: HIV INFECTION
  6. SENSIPAR [Concomitant]
     Active Substance: CINACALCET HYDROCHLORIDE
  7. CRIXIVAN [Concomitant]
     Active Substance: INDINAVIR SULFATE
     Indication: HIV INFECTION
  8. LEVAQUIN [Concomitant]
     Active Substance: LEVOFLOXACIN
  9. RENVELA [Concomitant]
     Active Substance: SEVELAMER CARBONATE
  10. ZOCOR [Concomitant]
     Active Substance: SIMVASTATIN
  11. ZOSYN [Concomitant]
     Active Substance: PIPERACILLIN SODIUM\TAZOBACTAM SODIUM
  12. AURYXIA [Concomitant]
     Active Substance: TETRAFERRIC TRICITRATE DECAHYDRATE
  13. QVAR [Concomitant]
     Active Substance: BECLOMETHASONE DIPROPIONATE
  14. ALBUTEROL. [Concomitant]
     Active Substance: ALBUTEROL
  15. MONTELUCAST [Concomitant]
     Active Substance: MONTELUKAST SODIUM
  16. BEPREVE [Concomitant]
     Active Substance: BEPOTASTINE BESILATE
  17. VIRAMUNE [Concomitant]
     Active Substance: NEVIRAPINE
     Indication: HIV INFECTION
  18. CELEBREX [Concomitant]
     Active Substance: CELECOXIB
  19. NUCYNTA [Concomitant]
     Active Substance: TAPENTADOL HYDROCHLORIDE
  20. BACTRIM [Concomitant]
     Active Substance: SULFAMETHOXAZOLE\TRIMETHOPRIM
  21. TYLENOL [Concomitant]
     Active Substance: ACETAMINOPHEN
  22. ADVAIR HFA [Concomitant]
     Active Substance: FLUTICASONE PROPIONATE\SALMETEROL XINAFOATE
  23. TOPROL XL [Concomitant]
     Active Substance: METOPROLOL SUCCINATE
  24. FENTANYL. [Concomitant]
     Active Substance: FENTANYL
  25. ONDANSETRON [Concomitant]
     Active Substance: ONDANSETRON
  26. ZERIT [Concomitant]
     Active Substance: STAVUDINE
  27. LISINOPRIL. [Concomitant]
     Active Substance: LISINOPRIL
  28. PREVACID [Concomitant]
     Active Substance: LANSOPRAZOLE
  29. LORTAB [Concomitant]
     Active Substance: ACETAMINOPHEN\HYDROCODONE BITARTRATE
  30. BENADRYL [Concomitant]
     Active Substance: DIPHENHYDRAMINE HYDROCHLORIDE
  31. VIREAD [Suspect]
     Active Substance: TENOFOVIR DISOPROXIL FUMARATE
     Dosage: UNK
     Route: 048
     Dates: start: 2006, end: 201608
  32. LIPITOR [Concomitant]
     Active Substance: ATORVASTATIN CALCIUM
  33. INSULIN [Concomitant]
     Active Substance: INSULIN NOS
  34. PLAVIX [Concomitant]
     Active Substance: CLOPIDOGREL BISULFATE
  35. COUMADIN [Concomitant]
     Active Substance: WARFARIN SODIUM
  36. AZITHROMYCIN ANHYDROUS. [Concomitant]
     Active Substance: AZITHROMYCIN ANHYDROUS
  37. ISENTRESS [Concomitant]
     Active Substance: RALTEGRAVIR POTASSIUM
     Indication: HIV INFECTION
  38. PRAVACHOL [Concomitant]
     Active Substance: PRAVASTATIN SODIUM
  39. NIFEDIPINE. [Concomitant]
     Active Substance: NIFEDIPINE
  40. AMLODIPINE [Concomitant]
     Active Substance: AMLODIPINE BESYLATE
  41. DIOVAN [Concomitant]
     Active Substance: VALSARTAN
  42. PEPCID [Concomitant]
     Active Substance: FAMOTIDINE
  43. HEPARIN [Concomitant]
     Active Substance: HEPARIN SODIUM
  44. SULFAMETHOXAZOLE [Concomitant]
     Active Substance: SULFAMETHOXAZOLE
  45. AZELASTINE. [Concomitant]
     Active Substance: AZELASTINE HYDROCHLORIDE
  46. NYSTATIN. [Concomitant]
     Active Substance: NYSTATIN

REACTIONS (7)
  - Renal failure [Unknown]
  - End stage renal disease [Recovered/Resolved]
  - Emotional distress [Unknown]
  - Anhedonia [Unknown]
  - Anxiety [Unknown]
  - Death [Fatal]
  - Pain [Unknown]

NARRATIVE: CASE EVENT DATE: 2009
